FAERS Safety Report 11309945 (Version 3)
Quarter: 2015Q4

REPORT INFORMATION
  Report Type: Report from Study
  Country: US (occurrence: US)
  Receive Date: 20150724
  Receipt Date: 20151016
  Transmission Date: 20160304
  Serious: Yes (Disabling, Other)
  Sender: FDA-Public Use
  Company Number: US-BAYER-2015-372521

PATIENT
  Age: 70 Year
  Sex: Female

DRUGS (5)
  1. STIVARGA [Suspect]
     Active Substance: REGORAFENIB
     Indication: COLORECTAL CANCER METASTATIC
     Dosage: 160 MG, QD
     Route: 048
     Dates: start: 20150628, end: 20150706
  2. STIVARGA [Suspect]
     Active Substance: REGORAFENIB
     Indication: COLORECTAL CANCER METASTATIC
     Dosage: 120 MG, QD
     Route: 048
     Dates: start: 20150707
  3. STIVARGA [Suspect]
     Active Substance: REGORAFENIB
     Indication: COLORECTAL CANCER METASTATIC
     Dosage: 160 MG, QD
     Route: 048
     Dates: end: 20150803
  4. STIVARGA [Suspect]
     Active Substance: REGORAFENIB
     Indication: COLORECTAL CANCER METASTATIC
     Dosage: 80 MG, QD
     Route: 048
     Dates: start: 20150804, end: 201508
  5. STIVARGA [Suspect]
     Active Substance: REGORAFENIB
     Indication: COLORECTAL CANCER METASTATIC
     Dosage: 160 MG, QD
     Route: 048
     Dates: start: 201508, end: 201508

REACTIONS (15)
  - Feeding disorder [None]
  - Headache [None]
  - Fatigue [Recovered/Resolved]
  - Oral pain [Not Recovered/Not Resolved]
  - Mobility decreased [Recovered/Resolved]
  - Weight decreased [None]
  - Erythema [Recovered/Resolved]
  - Asthenia [Recovered/Resolved]
  - Oropharyngeal pain [None]
  - Dry mouth [None]
  - Peripheral swelling [Recovered/Resolved]
  - Epistaxis [None]
  - Gingival pain [None]
  - Dysphagia [None]
  - Abdominal pain [None]

NARRATIVE: CASE EVENT DATE: 201506
